FAERS Safety Report 5947213-5 (Version None)
Quarter: 2008Q4

REPORT INFORMATION
  Report Type: 
  Country: None (occurrence: None)
  Receive Date: 20081110
  Receipt Date: 20081110
  Transmission Date: 20090506
  Serious: Yes (Death)
  Sender: FDA-Public Use
  Company Number: HR-ABBOTT-08P-216-0485456-00

PATIENT
  Age: 59 Year
  Sex: Male
  Weight: 70 kg

DRUGS (6)
  1. ZEMPLAR [Suspect]
     Indication: HYPERPARATHYROIDISM
     Dosage: 3X5 MCG PER WEEK
     Route: 042
     Dates: start: 20080929
  2. SEVELAMER [Concomitant]
     Indication: HYPERPHOSPHATAEMIA
     Route: 048
     Dates: start: 20050629
  3. VALSARTAN [Concomitant]
     Indication: HYPERTENSION
     Dates: start: 20080925
  4. LACIDIPINE [Concomitant]
     Indication: HYPERTENSION
     Dates: start: 20060316
  5. EPOETIN ALFA [Concomitant]
     Indication: ANAEMIA
     Dosage: 6000UNITS WEEKLY
     Dates: start: 20050428
  6. ISOSORBID MN RETARD [Concomitant]
     Indication: ANGINA PECTORIS
     Dates: start: 20070505

REACTIONS (1)
  - MYOCARDIAL INFARCTION [None]
